FAERS Safety Report 4286825-4 (Version None)
Quarter: 2004Q1

REPORT INFORMATION
  Report Type: 
  Country: None (occurrence: None)
  Receive Date: 20040206
  Receipt Date: 20040128
  Transmission Date: 20041129
  Serious: Yes (Hospitalization)
  Sender: FDA-Public Use
  Company Number: US-ROCHE-357498

PATIENT
  Age: 36 Year
  Sex: Female

DRUGS (2)
  1. ACCUTANE [Suspect]
     Indication: ACNE
     Route: 048
     Dates: start: 19980728, end: 19981215
  2. ORTHO TRI-CYCLEN [Concomitant]
     Indication: CONTRACEPTION
     Route: 048

REACTIONS (1)
  - GASTROINTESTINAL DISORDER [None]
